FAERS Safety Report 15493659 (Version 2)
Quarter: 2018Q4

REPORT INFORMATION
  Report Type: Report from Study
  Country: US (occurrence: US)
  Receive Date: 20181012
  Receipt Date: 20181127
  Transmission Date: 20190205
  Serious: Yes (Hospitalization)
  Sender: FDA-Public Use
  Company Number: US-RETROPHIN, INC.-2018RTN00037

PATIENT
  Age: 21 Year
  Sex: Female
  Weight: 69.84 kg

DRUGS (8)
  1. NEXPLANON [Suspect]
     Active Substance: ETONOGESTREL
  2. METRONIDAZOLE. [Suspect]
     Active Substance: METRONIDAZOLE
     Indication: URINARY TRACT INFECTION
     Dosage: 500 MG, 2X/DAY
     Dates: start: 20180917, end: 20180925
  3. VENLAFAXINE [Concomitant]
     Active Substance: VENLAFAXINE HYDROCHLORIDE
  4. MACROBID [Suspect]
     Active Substance: NITROFURANTOIN\NITROFURANTOIN MONOHYDRATE
     Indication: URINARY TRACT INFECTION
     Dosage: UNK
     Dates: start: 201809, end: 201809
  5. CHOLIC ACID [Suspect]
     Active Substance: CHOLIC ACID
     Dosage: 750 MG, 1X/DAY
     Route: 048
     Dates: start: 201808
  6. CHOLIC ACID (INVESTIGATIONAL DRUG) [Suspect]
     Active Substance: CHOLIC ACID
     Indication: XANTHOMATOSIS
     Dosage: 750 MG, 1X/DAY
     Route: 065
     Dates: start: 20140204, end: 201510
  7. CEPHALEXIN. [Suspect]
     Active Substance: CEPHALEXIN
     Indication: URINARY TRACT INFECTION
     Dosage: UNK
     Dates: start: 201807, end: 2018
  8. CHOLIC ACID [Suspect]
     Active Substance: CHOLIC ACID
     Indication: XANTHOMATOSIS
     Dosage: 750 MG (TITER), 1X/DAY
     Route: 048

REACTIONS (5)
  - Idiopathic intracranial hypertension [Unknown]
  - Dyspepsia [Recovered/Resolved]
  - Gastrooesophageal reflux disease [Recovered/Resolved]
  - Dystonia [Not Recovered/Not Resolved]
  - Urinary tract infection [Recovered/Resolved]

NARRATIVE: CASE EVENT DATE: 201807
